FAERS Safety Report 4000842 (Version 10)
Quarter: 2013Q2

REPORT INFORMATION
  Report Type: Report from Study
  Country: PL (occurrence: PL)
  Receive Date: 20030922
  Receipt Date: 20130523
  Transmission Date: 20140414
  Serious: Yes (Life-Threatening, Hospitalization, Other)
  Sender: FDA-Public Use
  Company Number: PL-ROCHE-346719

PATIENT
  Age: 57 Year
  Sex: Male
  Weight: 67 kg

DRUGS (30)
  1. PEG-INTERFERON ALFA 2A [Suspect]
     Indication: CHRONIC HEPATITIS C
     Route: 058
     Dates: start: 20030128, end: 20030908
  2. RIBAVIRIN [Suspect]
     Indication: CHRONIC HEPATITIS C
     Dosage: TWO TABLETS IN THE MORNING AND THREE TABLETS IN THE EVENING.
     Route: 048
     Dates: start: 20030128, end: 20030909
  3. KETOKONAZOL [Concomitant]
     Dosage: DAILY DOSE=.2 UNIT
     Route: 065
     Dates: start: 20030923, end: 20031102
  4. BUDESONID [Concomitant]
     Dosage: DRUG NAME REPORTED AS BUDESONIT.
     Route: 065
  5. CREON [Concomitant]
     Route: 065
  6. EUPHYLIN [Concomitant]
     Route: 065
  7. POLOPIRYNA [Concomitant]
     Dosage: DRUG NAME REPORTED AS POLOPYRINA S.
     Route: 065
  8. VITAMIN C [Concomitant]
     Route: 065
  9. CIPROFLOXACIN [Concomitant]
     Dosage: AT THE TIME OF DISCHARGE 500 MG TWICE DAILY EVERY 12 HOURS.
     Route: 065
  10. TAZOCIN [Concomitant]
     Route: 065
  11. REMESTYP [Concomitant]
     Route: 065
  12. NATRIUM BICARBONICUM [Concomitant]
     Route: 065
  13. CYCLONAMINE [Concomitant]
     Dosage: DRUG NAME REPORTED AS CYCLOAMIUM.
     Route: 065
  14. VITAMIN K [Concomitant]
     Route: 065
  15. NACL [Concomitant]
     Route: 065
  16. FUROSEMIDE [Concomitant]
     Dosage: AT THE TIME OF DISCHARGE EVERY OTHER DAY.
     Route: 065
  17. METOCLOPRAMIDE [Concomitant]
     Route: 065
  18. TANNIN ALBUMINATE [Concomitant]
     Dosage: DRUG NAME REPORTED AS TANNINUM ALBUMINATUM.
     Route: 065
  19. KALIPOZ [Concomitant]
     Dosage: AT THE TIME OF DISCHARGE ONE TABLET TWICE DAILY.
     Route: 065
  20. PYRALGIN [Concomitant]
     Dosage: DRUG NAME REPORTED AS PYRALGINA.
     Route: 065
  21. MONONIT [Concomitant]
     Dosage: AT THE TIME OF DISCHARGE 20 MG IN THE MORNING AND AT NOON.
     Route: 065
  22. HYDROCORTISONE [Concomitant]
     Route: 065
  23. RELANIUM [Concomitant]
     Route: 065
  24. SPASMALGAN [Concomitant]
     Route: 065
  25. TRAMAL [Concomitant]
     Dosage: AT THE TIME OF DISCHARGE ONE TABLET THREE TIMES DAILY.
     Route: 065
  26. RANIGAST [Concomitant]
     Dosage: AT THE TIME OF DISCHARGE ONE TABLET TWICE DAILY.
     Route: 065
  27. LACTULOSE [Concomitant]
     Route: 065
  28. FRAXIPARINE [Concomitant]
     Route: 065
  29. LORAFEN [Concomitant]
     Route: 065
  30. KETONAL [Concomitant]
     Route: 065

REACTIONS (7)
  - Escherichia sepsis [Recovered/Resolved]
  - Renal failure acute [Recovered/Resolved]
  - Subacute endocarditis [Recovered/Resolved]
  - Gastrointestinal haemorrhage [Recovered/Resolved]
  - Abdominal pain [Recovered/Resolved]
  - Epididymitis [Recovering/Resolving]
  - General physical health deterioration [Unknown]
